FAERS Safety Report 8548028-4 (Version None)
Quarter: 2012Q3

REPORT INFORMATION
  Report Type: 
  Country: None (occurrence: None)
  Receive Date: 20120730
  Receipt Date: 20120723
  Transmission Date: 20120928
  Serious: Yes (Other)
  Sender: FDA-Public Use
  Company Number: AU-ROCHE-1092898

PATIENT
  Age: 40 Year
  Sex: Male

DRUGS (1)
  1. MABTHERA [Suspect]
     Indication: THROMBOCYTOPENIC PURPURA

REACTIONS (1)
  - THROMBOTIC THROMBOCYTOPENIC PURPURA [None]
